FAERS Safety Report 8339513-9 (Version None)
Quarter: 2012Q2

REPORT INFORMATION
  Report Type: 
  Country: None (occurrence: None)
  Receive Date: 20120507
  Receipt Date: 20120405
  Transmission Date: 20120825
  Serious: Yes (Hospitalization)
  Sender: FDA-Public Use
  Company Number: US-BAYER-201032218NA

PATIENT
  Age: 65 Year
  Sex: Female
  Weight: 60 kg

DRUGS (27)
  1. MEK INHIBITOR (DIHYDROXYPROP-DIFLU-METHOXYPHEN-CYCLOPROPA-SULFAMI) [Suspect]
     Dosage: C3 D23
     Dates: start: 20100722, end: 20100813
  2. SORAFENIB (RAF KINASE INHIBITOR) [Suspect]
     Dosage: C3 D23
     Route: 048
     Dates: start: 20100722, end: 20100813
  3. ALBUTEROL [Concomitant]
     Indication: DYSPNOEA
  4. PREDNISONE TAB [Concomitant]
     Indication: BRONCHITIS
     Dosage: 60 MG (DAILY DOSE), , ORAL
     Route: 048
     Dates: start: 20100903, end: 20100904
  5. FLUCONAZOLE [Concomitant]
     Indication: FUNGAL INFECTION
     Dosage: 100 MG (DAILY DOSE), , ORAL
     Route: 048
     Dates: start: 20100903, end: 20100907
  6. ALBUTEROL [Concomitant]
     Indication: PULMONARY CONGESTION
     Dosage: 2 PUFFS/INHALER
     Route: 055
     Dates: start: 20090501
  7. PROTONIX [Concomitant]
     Indication: ANTACID THERAPY
     Route: 048
     Dates: start: 20020101
  8. PREDNISONE TAB [Concomitant]
     Dosage: 20 MG (DAILY DOSE), , ORAL
     Route: 048
     Dates: start: 20100906, end: 20100907
  9. LIDOCAINE [Concomitant]
     Indication: STOMATITIS
     Dosage: 15 ML/300 MG; SWISH/SWALLOW WITH MEALS
     Route: 048
     Dates: start: 20100820, end: 20100902
  10. PREDNISONE TAB [Concomitant]
     Indication: CHRONIC OBSTRUCTIVE PULMONARY DISEASE
     Dosage: 40 MG (DAILY DOSE), , ORAL
     Route: 048
     Dates: start: 20100904, end: 20100906
  11. MEK INHIBITOR (DIHYDROXYPROP-DIFLU-METHOXYPHEN-CYCLOPROPA-SULFAMI) [Suspect]
     Indication: COLORECTAL CANCER METASTATIC
     Dosage: COURSE 1-3
     Dates: start: 20100527
  12. IMODIUM [Concomitant]
     Indication: DIARRHOEA
     Dosage: PRN
     Route: 048
     Dates: start: 20100529, end: 20100816
  13. DILTIAZEM [Concomitant]
     Indication: TACHYCARDIA
     Route: 048
     Dates: start: 20100822
  14. LIDOCAINE [Concomitant]
  15. MUCINEX [Concomitant]
     Indication: PULMONARY CONGESTION
     Dosage: 200 MG
     Dates: start: 20090501
  16. LOMOTIL [DIPHENOXYLATE HYDROCHLORIDE] [Concomitant]
     Indication: DIARRHOEA
     Dosage: 2.5 MG
     Route: 048
     Dates: start: 20100529
  17. FERROUS SULFATE TAB [Concomitant]
     Indication: MINERAL SUPPLEMENTATION
     Route: 048
     Dates: start: 20100527
  18. LIDOCAINE [Concomitant]
     Indication: MUCOSAL INFLAMMATION
  19. DILANTIN [Concomitant]
     Dosage: UNK
     Dates: end: 20100511
  20. FERROUS SULFATE TAB [Concomitant]
     Indication: ANAEMIA PROPHYLAXIS
  21. MARINOL [Concomitant]
     Indication: DECREASED APPETITE
     Route: 048
     Dates: start: 20100819
  22. MARINOL [Concomitant]
     Indication: PAIN
  23. SORAFENIB (RAF KINASE INHIBITOR) [Suspect]
     Indication: COLORECTAL CANCER METASTATIC
     Dosage: COURSE 1 -3
     Route: 048
     Dates: start: 20100530
  24. MUCINEX [Concomitant]
     Indication: DYSPNOEA
  25. MUCINEX [Concomitant]
     Route: 048
  26. KEPPRA [Concomitant]
     Indication: CONVULSION PROPHYLAXIS
     Dosage: X 7 DAYS
     Route: 048
     Dates: start: 20100902
  27. LEVAQUIN [Concomitant]
     Indication: BRONCHITIS
     Dosage: 500 MG (DAILY DOSE), , ORAL
     Route: 048
     Dates: start: 20100903, end: 20100907

REACTIONS (7)
  - DIARRHOEA [None]
  - APHASIA [None]
  - FATIGUE [None]
  - DYSPNOEA [None]
  - TACHYCARDIA [None]
  - HYPOKALAEMIA [None]
  - ANAEMIA [None]
